FAERS Safety Report 8902162 (Version 1)
Quarter: 2012Q4

REPORT INFORMATION
  Report Type: 
  Country: CH (occurrence: CH)
  Receive Date: 20121112
  Receipt Date: 20121112
  Transmission Date: 20130627
  Serious: Yes (Other)
  Sender: FDA-Public Use
  Company Number: PHHY2012CH102814

PATIENT
  Age: 72 Year
  Sex: Female

DRUGS (2)
  1. ACLASTA [Suspect]
     Indication: OSTEOPOROTIC FRACTURE
     Route: 042
     Dates: start: 20110825
  2. ACLASTA [Suspect]
     Dosage: 4 mg, UNK
     Route: 042
     Dates: start: 20120823

REACTIONS (4)
  - Papule [Recovering/Resolving]
  - Pruritus [Recovering/Resolving]
  - Incorrect dose administered [Unknown]
  - Rash [Recovering/Resolving]
